FAERS Safety Report 7954711-1 (Version None)
Quarter: 2011Q4

REPORT INFORMATION
  Report Type: 
  Country: None (occurrence: None)
  Receive Date: 20111202
  Receipt Date: 20111130
  Transmission Date: 20120403
  Serious: Yes (Death)
  Sender: FDA-Public Use
  Company Number: CA-ROCHE-1012828

PATIENT
  Sex: Female
  Weight: 65.83 kg

DRUGS (3)
  1. SYNTHROID [Concomitant]
  2. XELODA [Suspect]
     Indication: BREAST CANCER METASTATIC
     Route: 048
     Dates: start: 20091020, end: 20110301
  3. TYKERB [Concomitant]

REACTIONS (1)
  - DISEASE PROGRESSION [None]
